FAERS Safety Report 7973459-0 (Version None)
Quarter: 2011Q4

REPORT INFORMATION
  Report Type: 
  Country: None (occurrence: None)
  Receive Date: 20111122
  Receipt Date: 20110617
  Transmission Date: 20120403
  Serious: No
  Sender: FDA-Public Use
  Company Number: PHHY2011US52010

PATIENT
  Age: 43 Year
  Sex: Male

DRUGS (2)
  1. GILENYA [Suspect]
     Indication: RELAPSING-REMITTING MULTIPLE SCLEROSIS
     Dosage: 0.5 MG, QD, ORAL
     Route: 048
     Dates: start: 20110609
  2. VITAMIN D (EROCALCIFEROL) [Concomitant]

REACTIONS (7)
  - INSOMNIA [None]
  - PYREXIA [None]
  - CHEST PAIN [None]
  - TREMOR [None]
  - PARAESTHESIA [None]
  - NASOPHARYNGITIS [None]
  - PAIN IN EXTREMITY [None]
